FAERS Safety Report 26052916 (Version 1)
Quarter: 2025Q4

REPORT INFORMATION
  Report Type: Spontaneous
  Country: US (occurrence: US)
  Receive Date: 20251117
  Receipt Date: 20251117
  Transmission Date: 20260118
  Serious: No
  Sender: MYLAN
  Company Number: US-MYLANLABS-2025M1097083

PATIENT
  Sex: Female

DRUGS (1)
  1. XANAX [Suspect]
     Active Substance: ALPRAZOLAM
     Indication: Anxiety
     Dosage: UNK, TID (THRICE DAILY)

REACTIONS (4)
  - Eructation [Unknown]
  - Discomfort [Unknown]
  - Dyspepsia [Unknown]
  - Abdominal pain lower [Unknown]
